FAERS Safety Report 25012200 (Version 1)
Quarter: 2025Q1

REPORT INFORMATION
  Report Type: Spontaneous
  Country: US (occurrence: US)
  Receive Date: 20250226
  Receipt Date: 20250226
  Transmission Date: 20250409
  Serious: No
  Sender: ELI LILLY AND COMPANY
  Company Number: US-ELI_LILLY_AND_COMPANY-US202502017942

PATIENT
  Age: 72 Year
  Sex: Female

DRUGS (13)
  1. MOUNJARO [Suspect]
     Active Substance: TIRZEPATIDE
     Indication: Weight control
     Route: 065
     Dates: start: 202502
  2. MOUNJARO [Suspect]
     Active Substance: TIRZEPATIDE
     Indication: Weight control
     Route: 065
     Dates: start: 202502
  3. MOUNJARO [Suspect]
     Active Substance: TIRZEPATIDE
     Indication: Weight control
     Route: 065
     Dates: start: 202502
  4. MOUNJARO [Suspect]
     Active Substance: TIRZEPATIDE
     Indication: Weight control
     Route: 065
     Dates: start: 202502
  5. MOUNJARO [Suspect]
     Active Substance: TIRZEPATIDE
     Indication: Diabetes mellitus
  6. MOUNJARO [Suspect]
     Active Substance: TIRZEPATIDE
     Indication: Diabetes mellitus
  7. MOUNJARO [Suspect]
     Active Substance: TIRZEPATIDE
     Indication: Diabetes mellitus
  8. MOUNJARO [Suspect]
     Active Substance: TIRZEPATIDE
     Indication: Diabetes mellitus
  9. MOUNJARO [Suspect]
     Active Substance: TIRZEPATIDE
     Indication: Cardiac disorder
  10. MOUNJARO [Suspect]
     Active Substance: TIRZEPATIDE
     Indication: Cardiac disorder
  11. MOUNJARO [Suspect]
     Active Substance: TIRZEPATIDE
     Indication: Cardiac disorder
  12. MOUNJARO [Suspect]
     Active Substance: TIRZEPATIDE
     Indication: Cardiac disorder
  13. TAMIFLU [Suspect]
     Active Substance: OSELTAMIVIR PHOSPHATE
     Indication: Influenza
     Route: 065
     Dates: start: 20250217, end: 20250219

REACTIONS (3)
  - Influenza [Recovering/Resolving]
  - Hypophagia [Recovering/Resolving]
  - Abdominal pain upper [Recovering/Resolving]

NARRATIVE: CASE EVENT DATE: 20250201
